FAERS Safety Report 22765313 (Version 3)
Quarter: 2025Q3

REPORT INFORMATION
  Report Type: Spontaneous
  Country: US (occurrence: US)
  Receive Date: 20230731
  Receipt Date: 20250916
  Transmission Date: 20251021
  Serious: Yes (Other)
  Sender: CIPLA
  Company Number: US-CIPLA LTD.-2023US03933

PATIENT

DRUGS (4)
  1. SAJAZIR [Suspect]
     Active Substance: ICATIBANT ACETATE
     Indication: Complement factor abnormal
     Route: 058
     Dates: start: 20230707
  2. SAJAZIR [Suspect]
     Active Substance: ICATIBANT ACETATE
     Indication: Angioedema
     Route: 058
     Dates: start: 20230707
  3. SAJAZIR [Suspect]
     Active Substance: ICATIBANT ACETATE
     Route: 058
  4. BENADRYL [Concomitant]
     Active Substance: DIPHENHYDRAMINE HYDROCHLORIDE
     Indication: Product used for unknown indication
     Route: 065

REACTIONS (11)
  - Angina pectoris [Unknown]
  - Hypertension [Unknown]
  - Blood glucose increased [Unknown]
  - Hereditary angioedema [Unknown]
  - Blood sodium increased [Unknown]
  - Fatigue [Unknown]
  - Contusion [Unknown]
  - Fall [Unknown]
  - Ligament sprain [Unknown]
  - Somnolence [Unknown]
  - Pyrexia [Unknown]

NARRATIVE: CASE EVENT DATE: 20250828
